FAERS Safety Report 8599063-1 (Version None)
Quarter: 2012Q3

REPORT INFORMATION
  Report Type: 
  Country: None (occurrence: None)
  Receive Date: 20120816
  Receipt Date: 19931011
  Transmission Date: 20120928
  Serious: Yes (Hospitalization)
  Sender: FDA-Public Use
  Company Number: US-ROCHE-1101250

PATIENT
  Age: 60 Year
  Sex: Male

DRUGS (14)
  1. PROCARDIA [Concomitant]
  2. TRIDIL [Concomitant]
  3. ASPIRIN [Concomitant]
  4. HEPARIN [Concomitant]
     Dosage: 1000 UNITS PER HOUR
     Route: 040
  5. MORPHINE SULFATE [Concomitant]
     Route: 042
  6. ACTIVASE [Suspect]
     Indication: ACUTE MYOCARDIAL INFARCTION
     Dosage: 100 CC PER HOUR
  7. LOPRESSOR [Concomitant]
  8. TRIDIL [Concomitant]
  9. TRIDIL [Concomitant]
  10. TRIDIL [Concomitant]
  11. TRIDIL [Concomitant]
     Dosage: OVER 15 MINS
  12. MORPHINE SULFATE [Concomitant]
     Route: 042
  13. MORPHINE SULFATE [Concomitant]
     Route: 042
  14. TRIDIL [Concomitant]

REACTIONS (2)
  - HYPOTENSION [None]
  - CHEST PAIN [None]
